FAERS Safety Report 8025420-8 (Version None)
Quarter: 2012Q1

REPORT INFORMATION
  Report Type: 
  Country: None (occurrence: None)
  Receive Date: 20120105
  Receipt Date: 20111228
  Transmission Date: 20120608
  Serious: Yes (Other)
  Sender: FDA-Public Use
  Company Number: PHHY2011JP113195

PATIENT
  Age: 44 Year
  Sex: Female

DRUGS (3)
  1. CORTICOSTEROID NOS [Concomitant]
     Route: 048
  2. LASIX [Concomitant]
     Route: 048
  3. NEORAL [Suspect]
     Indication: SYSTEMIC LUPUS ERYTHEMATOSUS
     Dosage: 400 MG, DAILY
     Route: 048
     Dates: end: 20111227

REACTIONS (4)
  - THROMBOTIC THROMBOCYTOPENIC PURPURA [None]
  - DEPRESSED LEVEL OF CONSCIOUSNESS [None]
  - CEREBRAL INFARCTION [None]
  - THROMBOTIC MICROANGIOPATHY [None]
